FAERS Safety Report 11781831 (Version 2)
Quarter: 2015Q4

REPORT INFORMATION
  Report Type: Report from Study
  Country: PL (occurrence: PL)
  Receive Date: 20151126
  Receipt Date: 20151211
  Transmission Date: 20160305
  Serious: Yes (Hospitalization, Disabling, Other)
  Sender: FDA-Public Use
  Company Number: PL-AMGEN-POLCT2015118053

PATIENT
  Age: 67 Year
  Sex: Male
  Weight: 71 kg

DRUGS (13)
  1. PREFILLED AUTOINJECTOR/PEN [Suspect]
     Active Substance: DEVICE
     Indication: DYSLIPIDAEMIA
     Dosage: UNK
     Route: 058
     Dates: start: 20140729
  2. PROPRANOLOL [Concomitant]
     Active Substance: PROPRANOLOL\PROPRANOLOL HYDROCHLORIDE
     Dosage: 10 MG, BID
  3. TARDYFERON [Concomitant]
     Active Substance: FERROUS SULFATE\FOLIC ACID
  4. AMG 145 [Suspect]
     Active Substance: EVOLOCUMAB
     Indication: DYSLIPIDAEMIA
     Dosage: 420 MG, Q4WK
     Route: 058
     Dates: start: 20140729
  5. ACIDUM FOLICUM [Concomitant]
     Active Substance: FOLIC ACID
     Dosage: 5 MG, UNK
  6. PIRAMIL [Concomitant]
     Dosage: 400 MG, UNK
  7. POLOCARD [Concomitant]
     Active Substance: ASPIRIN
     Dosage: 75 MG, UNK
  8. CONTROLOC                          /01263201/ [Concomitant]
     Dosage: 20 MG, UNK
  9. TAMSUGEN [Concomitant]
     Dosage: 0.4 MG, UNK
  10. ROSUVASTATIN [Suspect]
     Active Substance: ROSUVASTATIN
     Indication: DYSLIPIDAEMIA
     Dosage: 20 MG, UNK
     Route: 065
     Dates: start: 20140610, end: 20151105
  11. AMLODIPINE [Concomitant]
     Active Substance: AMLODIPINE BESYLATE
     Dosage: 5 MG, QD
  12. ALDAN                              /00587801/ [Concomitant]
     Dosage: 5 MG, UNK
  13. POLFILIN [Concomitant]
     Dosage: 400 MG, UNK

REACTIONS (2)
  - Osteoarthritis [Not Recovered/Not Resolved]
  - Hyperthyroidism [Recovered/Resolved]

NARRATIVE: CASE EVENT DATE: 20151016
